FAERS Safety Report 5251381-0 (Version None)
Quarter: 2007Q1

REPORT INFORMATION
  Report Type: 
  Country: None (occurrence: None)
  Receive Date: 20070228
  Receipt Date: 20060502
  Transmission Date: 20070707
  Serious: No
  Sender: FDA-Public Use
  Company Number: US-GLAXOSMITHKLINE-A0604108A

PATIENT
  Age: 15 Year
  Sex: Female

DRUGS (5)
  1. LAMICTAL [Suspect]
     Indication: EPILEPSY
     Dosage: 400MG TWICE PER DAY
     Route: 048
  2. HYDROCHLOROTHIAZIDE [Concomitant]
  3. L-CARNITINE [Concomitant]
  4. VITAMIN B-12 [Concomitant]
  5. ORTHO TRI-CYCLEN [Concomitant]

REACTIONS (1)
  - APHTHOUS STOMATITIS [None]
